FAERS Safety Report 14113940 (Version 4)
Quarter: 2020Q3

REPORT INFORMATION
  Report Type: Spontaneous
  Country: JP (occurrence: JP)
  Receive Date: 20171023
  Receipt Date: 20200909
  Transmission Date: 20201102
  Serious: Yes (Hospitalization, Other)
  Sender: FDA-Public Use
  Company Number: JP-SHIRE-JP201726938

PATIENT
  Age: 2 Year
  Sex: Male
  Weight: 12.3 kg

DRUGS (2)
  1. FEIBA NF [Suspect]
     Active Substance: ANTI-INHIBITOR COAGULANT COMPLEX
     Indication: HAEMOPHILIA B WITH ANTI FACTOR IX
     Dosage: 1000 IU, 3X A WEEK
     Route: 042
     Dates: start: 201701, end: 20171010
  2. LEVETIRACETAM. [Concomitant]
     Active Substance: LEVETIRACETAM
     Indication: PRODUCT USED FOR UNKNOWN INDICATION
     Dosage: 33 MILLIGRAM/KILOGRAM
     Route: 065

REACTIONS (3)
  - Haemarthrosis [Unknown]
  - Injection site haematoma [Recovering/Resolving]
  - Nephrotic syndrome [Recovered/Resolved]

NARRATIVE: CASE EVENT DATE: 20171010
